FAERS Safety Report 8267324-1 (Version None)
Quarter: 2012Q2

REPORT INFORMATION
  Report Type: 
  Country: None (occurrence: None)
  Receive Date: 20120409
  Receipt Date: 20120328
  Transmission Date: 20120825
  Serious: Yes (Hospitalization, Other)
  Sender: FDA-Public Use
  Company Number: JP-ELI_LILLY_AND_COMPANY-JP201203008700

PATIENT
  Age: 65 Year
  Sex: Male
  Weight: 64 kg

DRUGS (3)
  1. HUMALOG MIX 50/50 [Suspect]
     Dosage: UNK
     Route: 058
     Dates: start: 20101121
  2. HUMALOG MIX 50/50 [Suspect]
     Dosage: UNK
     Route: 058
     Dates: start: 20101101, end: 20101101
  3. HUMALOG MIX 50/50 [Suspect]
     Indication: TYPE 2 DIABETES MELLITUS
     Dosage: UNK
     Route: 058
     Dates: end: 20101101

REACTIONS (8)
  - BLOOD URIC ACID INCREASED [None]
  - SUICIDE ATTEMPT [None]
  - BLOOD POTASSIUM DECREASED [None]
  - WHITE BLOOD CELL COUNT INCREASED [None]
  - INTENTIONAL OVERDOSE [None]
  - BLOOD CREATINE PHOSPHOKINASE INCREASED [None]
  - HYPOGLYCAEMIC ENCEPHALOPATHY [None]
  - HYPOGLYCAEMIC COMA [None]
